FAERS Safety Report 25621496 (Version 1)
Quarter: 2025Q3

REPORT INFORMATION
  Report Type: Spontaneous
  Country: US (occurrence: US)
  Receive Date: 20250730
  Receipt Date: 20250730
  Transmission Date: 20251021
  Serious: Yes (Hospitalization, Other)
  Sender: RANBAXY
  Company Number: US-SUN PHARMACEUTICAL INDUSTRIES LTD-2025R1-519278

PATIENT
  Age: 60 Year
  Sex: Female

DRUGS (3)
  1. BUPROPION [Suspect]
     Active Substance: BUPROPION
     Indication: Product used for unknown indication
     Route: 065
  2. GABAPENTIN [Suspect]
     Active Substance: GABAPENTIN
     Indication: Product used for unknown indication
     Route: 065
  3. QUETIAPINE [Suspect]
     Active Substance: QUETIAPINE
     Indication: Product used for unknown indication
     Route: 065

REACTIONS (9)
  - Intentional overdose [Unknown]
  - Toxicity to various agents [Unknown]
  - Areflexia [Unknown]
  - Coma [Unknown]
  - Hypothermia [Unknown]
  - Hypotension [Unknown]
  - Shock [Unknown]
  - Lactic acidosis [Unknown]
  - Myoclonus [Unknown]
